FAERS Safety Report 10236061 (Version 1)
Quarter: 2014Q2

REPORT INFORMATION
  Report Type: Spontaneous
  Country: US (occurrence: US)
  Receive Date: 20140613
  Receipt Date: 20140613
  Transmission Date: 20141212
  Serious: No
  Sender: FDA-Public Use
  Company Number: US-ROXANE LABORATORIES, INC.-2014-RO-00923RO

PATIENT
  Age: 69 Year
  Sex: Female

DRUGS (3)
  1. TINIDAZOLE [Suspect]
     Indication: BLASTOCYSTIS INFECTION
     Dosage: 1500 MG
     Route: 065
  2. VITAMINS [Concomitant]
     Route: 065
  3. LORAZEPAM [Concomitant]
     Dosage: 2 MG
     Route: 065

REACTIONS (1)
  - Drug ineffective for unapproved indication [Unknown]
